FAERS Safety Report 5108339-1 (Version None)
Quarter: 2006Q3

REPORT INFORMATION
  Report Type: 
  Country: None (occurrence: None)
  Receive Date: 20060914
  Receipt Date: 20060914
  Transmission Date: 20061208
  Serious: Yes (Hospitalization)
  Sender: FDA-Public Use
  Company Number: None

PATIENT
  Age: 66 Year
  Sex: Male

DRUGS (4)
  1. EPTIFIBATIDE    75MG/100ML  19ML/HR [Suspect]
     Indication: PERCUTANEOUS CORONARY INTERVENTION
     Dates: start: 20060731, end: 20060731
  2. EPTIFIBATIDE    75MG/100ML  19ML/HR [Suspect]
     Indication: POSTOPERATIVE CARE
     Dates: start: 20060731, end: 20060731
  3. PLAVIX [Suspect]
     Indication: PERCUTANEOUS CORONARY INTERVENTION
     Dates: start: 20060731, end: 20060731
  4. PLAVIX [Suspect]
     Indication: POSTOPERATIVE CARE
     Dates: start: 20060731, end: 20060731

REACTIONS (8)
  - ABDOMINAL PAIN LOWER [None]
  - CATHETER RELATED COMPLICATION [None]
  - COAGULATION TIME PROLONGED [None]
  - HAEMATOCRIT DECREASED [None]
  - HAEMATOMA [None]
  - HAEMORRHAGE [None]
  - POST PROCEDURAL COMPLICATION [None]
  - PROCEDURAL COMPLICATION [None]
